FAERS Safety Report 6495988-1 (Version None)
Quarter: 2009Q4

REPORT INFORMATION
  Report Type: 
  Country: None (occurrence: None)
  Receive Date: 20091214
  Receipt Date: 20090917
  Transmission Date: 20100525
  Serious: No
  Sender: FDA-Public Use
  Company Number: US-BRISTOL-MYERS SQUIBB COMPANY-14775910

PATIENT
  Age: 42 Year
  Sex: Female

DRUGS (3)
  1. ABILIFY [Suspect]
     Indication: DEPRESSION
     Route: 048
     Dates: start: 20090813
  2. ZOLOFT [Suspect]
     Indication: DEPRESSION
  3. KLONOPIN [Suspect]

REACTIONS (7)
  - AGITATION [None]
  - ANXIETY [None]
  - HALLUCINATION [None]
  - INSOMNIA [None]
  - OBSESSIVE-COMPULSIVE DISORDER [None]
  - SUICIDAL IDEATION [None]
  - TRICHOTILLOMANIA [None]
